FAERS Safety Report 5482367-9 (Version None)
Quarter: 2007Q4

REPORT INFORMATION
  Report Type: 
  Country: None (occurrence: None)
  Receive Date: 20071011
  Receipt Date: 20071010
  Transmission Date: 20080405
  Serious: Yes (Other)
  Sender: FDA-Public Use
  Company Number: A0686919A

PATIENT
  Age: 13 Year
  Sex: Male

DRUGS (1)
  1. ADVAIR DISKUS 100/50 [Suspect]
     Indication: ASTHMA
     Dates: start: 20040101

REACTIONS (4)
  - BLOOD CORTISOL DECREASED [None]
  - GLAUCOMA [None]
  - HIP FRACTURE [None]
  - PELVIC FRACTURE [None]
